FAERS Safety Report 6847130-2 (Version None)
Quarter: 2010Q3

REPORT INFORMATION
  Report Type: 
  Country: None (occurrence: None)
  Receive Date: 20100716
  Receipt Date: 20100713
  Transmission Date: 20110219
  Serious: No
  Sender: FDA-Public Use
  Company Number: US-BIOGENIDEC-2010BI023618

PATIENT
  Age: 40 Year
  Sex: Female

DRUGS (1)
  1. TYSABRI [Suspect]
     Indication: MULTIPLE SCLEROSIS
     Route: 042
     Dates: start: 20081222

REACTIONS (7)
  - ARTHRALGIA [None]
  - BURNING SENSATION [None]
  - DEPRESSION [None]
  - DIZZINESS [None]
  - HYPOAESTHESIA [None]
  - NECK PAIN [None]
  - PERSONALITY CHANGE [None]
